FAERS Safety Report 5215364-9 (Version None)
Quarter: 2007Q1

REPORT INFORMATION
  Report Type: 
  Country: None (occurrence: None)
  Receive Date: 20070116
  Receipt Date: 20070110
  Transmission Date: 20070707
  Serious: Yes (Death, Hospitalization)
  Sender: FDA-Public Use
  Company Number: 2006-03250

PATIENT
  Age: 76 Year
  Sex: Male
  Weight: 82 kg

DRUGS (3)
  1. VELCADE [Suspect]
     Indication: MANTLE CELL LYMPHOMA
     Dosage: 3.20 MG, INTRAVENOUS
     Route: 042
     Dates: start: 20061219, end: 20061219
  2. MABTHERA (RITUXIMAB) [Suspect]
     Indication: MANTLE CELL LYMPHOMA
     Dosage: 750.00 MG, INTRAVENOUS
     Route: 042
     Dates: start: 20061219, end: 20061219
  3. ALLOPURINOL [Concomitant]

REACTIONS (12)
  - ABDOMINAL DISCOMFORT [None]
  - CARDIAC ARREST [None]
  - CHILLS [None]
  - CONDITION AGGRAVATED [None]
  - DRUG HYPERSENSITIVITY [None]
  - GASTRIC HAEMORRHAGE [None]
  - HYPOTENSION [None]
  - HYPOVOLAEMIC SHOCK [None]
  - LYMPHOMA [None]
  - PLATELET COUNT DECREASED [None]
  - SMALL INTESTINAL HAEMORRHAGE [None]
  - SPLENIC HAEMORRHAGE [None]
